FAERS Safety Report 5508268-5 (Version None)
Quarter: 2007Q4

REPORT INFORMATION
  Report Type: 
  Country: None (occurrence: None)
  Receive Date: 20071106
  Receipt Date: 20071016
  Transmission Date: 20080405
  Serious: No
  Sender: FDA-Public Use
  Company Number: US-BOEHRINGER INGELHEIM PHARMACEUTICALS, INC.-2007-BP-19199BP

PATIENT
  Age: 57 Year
  Sex: Male

DRUGS (2)
  1. FLOMAX [Suspect]
     Indication: BENIGN PROSTATIC HYPERPLASIA
     Route: 048
     Dates: start: 20060101
  2. FLOMAX [Suspect]
     Route: 048
     Dates: start: 20071001

REACTIONS (2)
  - NOCTURIA [None]
  - SEMEN VOLUME DECREASED [None]
